FAERS Safety Report 10733457 (Version 2)
Quarter: 2015Q1

REPORT INFORMATION
  Report Type: Spontaneous
  Country: US (occurrence: US)
  Receive Date: 20150123
  Receipt Date: 20150310
  Transmission Date: 20150721
  Serious: Yes (Hospitalization, Other)
  Sender: FDA-Public Use
  Company Number: US-BAYER-2015-006399

PATIENT
  Age: 53 Year
  Sex: Female
  Weight: 125 kg

DRUGS (8)
  1. ALKA-SELTZER PLUS DAY AND NIGHT MULTI-SYMPTOM COLD AND FLU FORMULA [Suspect]
     Active Substance: ACETAMINOPHEN\DEXTROMETHORPHAN HYDROBROMIDE\DOXYLAMINE SUCCINATE\PHENYLEPHRINE
     Indication: NASOPHARYNGITIS
     Dosage: 1 DF, ONCE
     Route: 048
     Dates: start: 20150109, end: 20150109
  2. MELOXICAM. [Concomitant]
     Active Substance: MELOXICAM
  3. BUPROPION [Concomitant]
     Active Substance: BUPROPION
  4. NORTRIPTYLINE [Concomitant]
     Active Substance: NORTRIPTYLINE
  5. TOPAMAX [Suspect]
     Active Substance: TOPIRAMATE
     Dosage: UNK
     Dates: start: 201501
  6. ESOMEPRAZOLE [Concomitant]
     Active Substance: ESOMEPRAZOLE
  7. CYMBALTA [Concomitant]
     Active Substance: DULOXETINE HYDROCHLORIDE
  8. METFORMIN [Concomitant]
     Active Substance: METFORMIN HYDROCHLORIDE

REACTIONS (13)
  - Urinary incontinence [Recovered/Resolved]
  - Rash [None]
  - Blood pressure increased [None]
  - Vomiting [None]
  - Decreased appetite [Recovered/Resolved]
  - Pneumonia [Recovered/Resolved]
  - Drug hypersensitivity [None]
  - Cough [Recovered/Resolved]
  - Sleep disorder [Recovered/Resolved]
  - Blood glucose increased [Unknown]
  - Somnolence [Not Recovered/Not Resolved]
  - Vomiting [Recovered/Resolved]
  - Paraesthesia [Recovered/Resolved]

NARRATIVE: CASE EVENT DATE: 201501
